FAERS Safety Report 15526652 (Version 5)
Quarter: 2019Q1

REPORT INFORMATION
  Report Type: Spontaneous
  Country: PT (occurrence: PT)
  Receive Date: 20181018
  Receipt Date: 20190131
  Transmission Date: 20190417
  Serious: Yes (Hospitalization, Other)
  Sender: FDA-Public Use
  Company Number: PT-OTSUKA-2018_033601

PATIENT
  Age: 48 Year
  Sex: Female

DRUGS (6)
  1. ARIPIPRAZOLE. [Suspect]
     Active Substance: ARIPIPRAZOLE
     Indication: DEPRESSION
  2. CLOMIPRAMINE [Concomitant]
     Active Substance: CLOMIPRAMINE
     Indication: DEPRESSIVE SYMPTOM
     Dosage: 75 MG, QD
     Route: 065
  3. ARIPIPRAZOLE. [Suspect]
     Active Substance: ARIPIPRAZOLE
     Indication: DEPRESSIVE SYMPTOM
     Dosage: 10 MG, QD
     Route: 065
  4. BROMAZEPAM [Concomitant]
     Active Substance: BROMAZEPAM
     Indication: DEPRESSIVE SYMPTOM
     Dosage: 6 MG, TID
     Route: 065
  5. BROMAZEPAM [Concomitant]
     Active Substance: BROMAZEPAM
     Indication: DEPRESSION
  6. CLOMIPRAMINE [Concomitant]
     Active Substance: CLOMIPRAMINE
     Indication: DEPRESSION

REACTIONS (10)
  - Haemolytic anaemia [Recovered/Resolved]
  - Product use in unapproved indication [Unknown]
  - Hyperbilirubinaemia [Unknown]
  - Chromaturia [Recovered/Resolved]
  - Leukocytosis [Unknown]
  - Tachycardia [Recovered/Resolved]
  - Pallor [Recovered/Resolved]
  - Weight decreased [Unknown]
  - Fatigue [Recovered/Resolved]
  - Thrombocytosis [Unknown]
